FAERS Safety Report 17752607 (Version 2)
Quarter: 2020Q2

REPORT INFORMATION
  Report Type: Spontaneous
  Country: FR (occurrence: FR)
  Receive Date: 20200506
  Receipt Date: 20200508
  Transmission Date: 20200714
  Serious: Yes (Death)
  Sender: FDA-Public Use
  Company Number: FR-ABBVIE-20K-056-3393642-00

PATIENT
  Sex: Female

DRUGS (1)
  1. VENCLYXTO [Suspect]
     Active Substance: VENETOCLAX
     Indication: BLOOD DISORDER
     Route: 048

REACTIONS (2)
  - Product dispensing error [Unknown]
  - Death [Fatal]

NARRATIVE: CASE EVENT DATE: 202003
